FAERS Safety Report 8392360-4 (Version None)
Quarter: 2012Q1

REPORT INFORMATION
  Report Type: 
  Country: None (occurrence: None)
  Receive Date: 20120323
  Receipt Date: 20110419
  Transmission Date: 20120608
  Serious: Yes (Other)
  Sender: FDA-Public Use
  Company Number: 163-21880-11040303

PATIENT
  Age: 77 Year
  Sex: Female
  Weight: 51.7101 kg

DRUGS (4)
  1. REVLIMID [Suspect]
     Indication: MULTIPLE MYELOMA
     Dosage: 15 MG, 1 IN 1 D, PO ; 10 MG, DAILY ON DAYS 1-14, PO
     Route: 048
     Dates: start: 20110401
  2. REVLIMID [Suspect]
     Indication: MULTIPLE MYELOMA
     Dosage: 15 MG, 1 IN 1 D, PO ; 10 MG, DAILY ON DAYS 1-14, PO
     Route: 048
     Dates: start: 20110301, end: 20110412
  3. VELCADE [Concomitant]
  4. DECADRON [Concomitant]

REACTIONS (2)
  - HAEMOGLOBIN DECREASED [None]
  - DYSPNOEA [None]
